FAERS Safety Report 7568925-6 (Version None)
Quarter: 2011Q2

REPORT INFORMATION
  Report Type: 
  Country: None (occurrence: None)
  Receive Date: 20110623
  Receipt Date: 20110620
  Transmission Date: 20111010
  Serious: Yes (Other)
  Sender: FDA-Public Use
  Company Number: US-PFIZER INC-2011136234

PATIENT
  Sex: Female
  Weight: 99.773 kg

DRUGS (4)
  1. NEURONTIN [Suspect]
  2. NEURONTIN [Suspect]
     Indication: NERVE INJURY
     Dosage: 300 MG, 2X/DAY
     Route: 048
     Dates: start: 20110201, end: 20110201
  3. NEURONTIN [Suspect]
     Indication: NEURALGIA
  4. PERCOCET [Concomitant]
     Dosage: UNK

REACTIONS (1)
  - IMPAIRED WORK ABILITY [None]
